FAERS Safety Report 4522377-9 (Version None)
Quarter: 2004Q4

REPORT INFORMATION
  Report Type: 
  Country: None (occurrence: None)
  Receive Date: 20041209
  Receipt Date: 20041203
  Transmission Date: 20050328
  Serious: Yes (Hospitalization)
  Sender: FDA-Public Use
  Company Number: FR-GLAXOSMITHKLINE-B0359293A

PATIENT
  Age: 78 Year
  Sex: Male
  Weight: 67 kg

DRUGS (8)
  1. AUGMENTIN '125' [Suspect]
     Indication: PNEUMONIA BACTERIAL
     Dosage: 1G THREE TIMES PER DAY
     Route: 048
     Dates: start: 20040721, end: 20040726
  2. TRIFLUCAN [Suspect]
     Indication: FUNGAL INFECTION
     Dosage: 1UNIT PER DAY
     Route: 048
     Dates: start: 20040723, end: 20040727
  3. AOTAL [Suspect]
     Indication: ALCOHOLISM
     Dosage: 1998MG PER DAY
     Route: 048
     Dates: start: 20040718, end: 20040727
  4. PREVISCAN [Concomitant]
     Indication: MYOCARDIAL ISCHAEMIA
     Dosage: 5MG PER DAY
     Route: 048
     Dates: start: 20040615
  5. RENITEC [Concomitant]
     Indication: ESSENTIAL HYPERTENSION
     Dosage: 20MG PER DAY
     Route: 048
     Dates: end: 20040731
  6. CORDARONE [Concomitant]
     Indication: ATRIAL FIBRILLATION
     Dosage: 200MG PER DAY
     Route: 048
  7. SERESTA [Concomitant]
     Route: 048
     Dates: start: 20040716
  8. OGAST [Concomitant]
     Dosage: 15MG PER DAY
     Route: 048
     Dates: end: 20040715

REACTIONS (9)
  - ALANINE AMINOTRANSFERASE INCREASED [None]
  - ASPARTATE AMINOTRANSFERASE INCREASED [None]
  - BLOOD ALKALINE PHOSPHATASE INCREASED [None]
  - BLOOD CREATININE INCREASED [None]
  - BLOOD UREA INCREASED [None]
  - CHOLESTASIS [None]
  - CYTOLYTIC HEPATITIS [None]
  - GAMMA-GLUTAMYLTRANSFERASE INCREASED [None]
  - RENAL FAILURE [None]
